FAERS Safety Report 6468831-4 (Version None)
Quarter: 2009Q4

REPORT INFORMATION
  Report Type: 
  Country: None (occurrence: None)
  Receive Date: 20091203
  Receipt Date: 20080512
  Transmission Date: 20100525
  Serious: Yes (Other)
  Sender: FDA-Public Use
  Company Number: US-ELI_LILLY_AND_COMPANY-US200610002981

PATIENT
  Sex: Male
  Weight: 112.47 kg

DRUGS (3)
  1. ZYPREXA [Suspect]
     Indication: MAJOR DEPRESSION
     Dosage: 20 MG, EACH EVENING
     Dates: start: 19980101, end: 20060101
  2. TRAZODONE HYDROCHLORIDE [Concomitant]
     Dosage: 200 MG, EACH EVENING
  3. MIRTAZAPINE [Concomitant]
     Dosage: 30 MG, EACH EVENING

REACTIONS (13)
  - ACTIVITIES OF DAILY LIVING IMPAIRED [None]
  - ASTHENIA [None]
  - BLINDNESS TRANSIENT [None]
  - BLOOD CHOLESTEROL INCREASED [None]
  - DIABETES MELLITUS [None]
  - DIZZINESS [None]
  - EJACULATION DISORDER [None]
  - FEELING ABNORMAL [None]
  - HYPERTENSION [None]
  - OEDEMA PERIPHERAL [None]
  - RESPIRATORY DISORDER [None]
  - VISUAL ACUITY REDUCED [None]
  - WEIGHT INCREASED [None]
